FAERS Safety Report 9628362 (Version 2)
Quarter: 2014Q1

REPORT INFORMATION
  Report Type: Report from Study
  Country: CO (occurrence: CO)
  Receive Date: 20131017
  Receipt Date: 20140116
  Transmission Date: 20141002
  Serious: Yes (Death, Hospitalization)
  Sender: FDA-Public Use
  Company Number: CO-ROCHE-1289079

PATIENT
  Sex: Male
  Weight: 70 kg

DRUGS (1)
  1. RANIBIZUMAB [Suspect]
     Indication: PRODUCT USED FOR UNKNOWN INDICATION
     Dosage: PATIENT HAD 8 APPLICATIONS OF LUCENTIS
     Route: 050

REACTIONS (3)
  - Terminal state [Fatal]
  - Metastases to prostate [Unknown]
  - Post procedural infection [Unknown]
